FAERS Safety Report 7150385-0 (Version None)
Quarter: 2010Q4

REPORT INFORMATION
  Report Type: 
  Country: None (occurrence: None)
  Receive Date: 20101210
  Receipt Date: 20101206
  Transmission Date: 20110411
  Serious: Yes (Hospitalization)
  Sender: FDA-Public Use
  Company Number: GB-PFIZER INC-GB-WYE-G06851910

PATIENT
  Age: 60 Year
  Sex: Male
  Weight: 81 kg

DRUGS (1)
  1. TORISEL [Suspect]
     Dosage: 25 MG, WEEKLY
     Route: 042
     Dates: start: 20080930, end: 20090817

REACTIONS (1)
  - BONE MARROW OEDEMA SYNDROME [None]
